FAERS Safety Report 8230629-4 (Version None)
Quarter: 2012Q1

REPORT INFORMATION
  Report Type: 
  Country: None (occurrence: None)
  Receive Date: 20120323
  Receipt Date: 20120315
  Transmission Date: 20120608
  Serious: Yes (Other)
  Sender: FDA-Public Use
  Company Number: JP-JNJFOC-20120309448

PATIENT
  Age: 46 Year
  Sex: Male

DRUGS (7)
  1. INVEGA [Suspect]
     Indication: PRODUCT USED FOR UNKNOWN INDICATION
     Route: 048
     Dates: start: 20120206, end: 20120220
  2. INVEGA [Suspect]
     Route: 048
     Dates: start: 20111219, end: 20120105
  3. FLUNITRAZEPAM [Concomitant]
     Dosage: 2-4 MG/DAY
     Route: 048
     Dates: start: 20111205
  4. INVEGA [Suspect]
     Route: 048
     Dates: start: 20120106, end: 20120205
  5. PROMAZINE HYDROCHLORIDE [Concomitant]
     Route: 048
     Dates: end: 20120220
  6. INVEGA [Suspect]
     Route: 048
     Dates: start: 20111205, end: 20111218
  7. ERIMIN [Concomitant]
     Route: 048
     Dates: start: 20120130, end: 20120205

REACTIONS (1)
  - LIVER DISORDER [None]
